FAERS Safety Report 8247044-X (Version None)
Quarter: 2012Q1

REPORT INFORMATION
  Report Type: 
  Country: None (occurrence: None)
  Receive Date: 20120330
  Receipt Date: 20120315
  Transmission Date: 20120608
  Serious: Yes (Death, Life-Threatening)
  Sender: FDA-Public Use
  Company Number: AU-ROCHE-1045440

PATIENT
  Sex: Female

DRUGS (5)
  1. FLUOROURACIL [Concomitant]
     Dosage: INFUSION OVER 46 HOURS
     Route: 042
     Dates: start: 20110409, end: 20120222
  2. AVASTIN [Suspect]
     Indication: COLORECTAL CANCER
     Route: 042
     Dates: start: 20120118, end: 20120222
  3. FLUOROURACIL [Concomitant]
     Indication: COLORECTAL CANCER METASTATIC
     Route: 042
     Dates: start: 20111109, end: 20120222
  4. OXALIPLATIN [Concomitant]
     Indication: COLORECTAL CANCER METASTATIC
     Route: 042
     Dates: start: 20111109, end: 20120222
  5. LEUCOVORIN CALCIUM [Concomitant]
     Indication: COLORECTAL CANCER METASTATIC
     Route: 042
     Dates: start: 20111109, end: 20120222

REACTIONS (2)
  - LARGE INTESTINE PERFORATION [None]
  - THROMBOCYTOPENIA [None]
